FAERS Safety Report 8637131 (Version 2)
Quarter: 2013Q3

REPORT INFORMATION
  Report Type: Spontaneous
  Country: US (occurrence: US)
  Receive Date: 20120627
  Receipt Date: 20130717
  Transmission Date: 20140515
  Serious: Yes (Disabling)
  Sender: FDA-Public Use
  Company Number: US-ASTRAZENECA-2012SE35706

PATIENT
  Age: 52 Year
  Sex: Male

DRUGS (2)
  1. NEXIUM [Suspect]
     Indication: GASTROINTESTINAL DISORDER
     Route: 048
     Dates: start: 2004, end: 2011
  2. BAKING SODA [Concomitant]
     Dosage: AS NEEDED

REACTIONS (10)
  - Arthropathy [Unknown]
  - Osteoporosis [Unknown]
  - Multiple fractures [Unknown]
  - Tooth loss [Unknown]
  - Bone loss [Unknown]
  - Pain in extremity [Unknown]
  - Arthralgia [Unknown]
  - Joint injury [Unknown]
  - Bone pain [Unknown]
  - Bone disorder [Unknown]
